FAERS Safety Report 5312795-3 (Version None)
Quarter: 2007Q2

REPORT INFORMATION
  Report Type: 
  Country: None (occurrence: None)
  Receive Date: 20070430
  Receipt Date: 20070418
  Transmission Date: 20071010
  Serious: Yes (Death)
  Sender: FDA-Public Use
  Company Number: CS-GENENTECH-240212

PATIENT
  Age: 30 Year
  Sex: Female

DRUGS (3)
  1. MABTHERA [Suspect]
     Indication: THROMBOCYTOPENIA
     Dosage: 500 MG, SINGLE
     Route: 042
     Dates: start: 20061205, end: 20061205
  2. AMIODARONE HCL [Suspect]
     Indication: WOLFF-PARKINSON-WHITE SYNDROME
  3. METHYLPREDNISOLONE 16MG TAB [Concomitant]
     Indication: DRUG USE FOR UNKNOWN INDICATION

REACTIONS (12)
  - CONDITION AGGRAVATED [None]
  - DIALYSIS [None]
  - ENTEROCOLITIS BACTERIAL [None]
  - EPISTAXIS [None]
  - GLOMERULONEPHRITIS [None]
  - HISTIOCYTOSIS HAEMATOPHAGIC [None]
  - PNEUMONIA [None]
  - PURPURA [None]
  - RESPIRATORY DISTRESS [None]
  - SALMONELLOSIS [None]
  - SKIN OEDEMA [None]
  - VIRAL RASH [None]
